FAERS Safety Report 7772794-9 (Version None)
Quarter: 2011Q3

REPORT INFORMATION
  Report Type: 
  Country: None (occurrence: None)
  Receive Date: 20110922
  Receipt Date: 20100115
  Transmission Date: 20111222
  Serious: Yes (Hospitalization)
  Sender: FDA-Public Use
  Company Number: US-ASTRAZENECA-2009SE21953

PATIENT
  Age: 433 Month
  Sex: Female
  Weight: 107.5 kg

DRUGS (12)
  1. SEROQUEL [Suspect]
     Route: 048
     Dates: start: 20060209
  2. TRAZODONE HYDROCHLORIDE [Concomitant]
     Dates: start: 19900101
  3. PROZAC [Concomitant]
     Dates: start: 19900101
  4. LAMICTAL [Concomitant]
     Dosage: 100 MG
     Dates: start: 20060101, end: 20070101
  5. SEROQUEL [Suspect]
     Route: 048
     Dates: end: 20070112
  6. IMIPRAMINE [Concomitant]
     Dates: start: 19900101, end: 19960101
  7. SEROQUEL [Suspect]
     Indication: DEPRESSION
     Route: 048
     Dates: start: 20010101, end: 20060101
  8. XANAX [Concomitant]
     Dates: start: 19900101
  9. PAXIL [Concomitant]
     Dates: start: 19960101, end: 20020101
  10. TOPAMAX [Concomitant]
  11. SERTRALINE HYDROCHLORIDE [Concomitant]
     Dates: start: 20090101
  12. ATIVAN [Concomitant]
     Dates: start: 20060209

REACTIONS (3)
  - WEIGHT INCREASED [None]
  - VISION BLURRED [None]
  - TYPE 2 DIABETES MELLITUS [None]
